FAERS Safety Report 9985969 (Version 3)
Quarter: 2014Q3

REPORT INFORMATION
  Report Type: Report from Study
  Country: JP (occurrence: JP)
  Receive Date: 20140307
  Receipt Date: 20140904
  Transmission Date: 20150326
  Serious: Yes (Death, Hospitalization)
  Sender: FDA-Public Use
  Company Number: JP-ABBVIE-14P-087-1210259-00

PATIENT
  Age: 85 Year
  Sex: Female
  Weight: 30 kg

DRUGS (5)
  1. LIPACREON CAPSULES 150 MG [Suspect]
     Active Substance: PANCRELIPASE
     Indication: PANCREATIC INSUFFICIENCY
     Route: 048
     Dates: start: 20130610, end: 20130906
  2. LEVOFLOXACIN HEMIHYDRATE [Concomitant]
     Active Substance: LEVOFLOXACIN
     Indication: PRODUCT USED FOR UNKNOWN INDICATION
     Route: 048
     Dates: end: 20130906
  3. ESOMEPRAZOLE MAGNESIUM. [Concomitant]
     Active Substance: ESOMEPRAZOLE MAGNESIUM
     Indication: PANCREATIC INSUFFICIENCY
     Route: 048
     Dates: end: 20130906
  4. AMLODIPINE BESILATE [Concomitant]
     Active Substance: AMLODIPINE BESYLATE
     Indication: DISEASE COMPLICATION
     Route: 048
     Dates: end: 20130906
  5. SENNOSIDE [Concomitant]
     Active Substance: SENNOSIDES
     Indication: DISEASE COMPLICATION
     Route: 048
     Dates: end: 20130906

REACTIONS (3)
  - Decreased appetite [Not Recovered/Not Resolved]
  - Pancreatic carcinoma recurrent [Fatal]
  - Vomiting [Not Recovered/Not Resolved]

NARRATIVE: CASE EVENT DATE: 20130805
